FAERS Safety Report 4566472-7 (Version None)
Quarter: 2005Q1

REPORT INFORMATION
  Report Type: 
  Country: None (occurrence: None)
  Receive Date: 20050128
  Receipt Date: 20050117
  Transmission Date: 20050727
  Serious: Yes (Hospitalization, Other)
  Sender: FDA-Public Use
  Company Number: HQWYE672718JAN05

PATIENT
  Age: 37 Year
  Sex: Male
  Weight: 73.6 kg

DRUGS (12)
  1. PROGRAF [Suspect]
     Indication: IMMUNOSUPPRESSANT DRUG THERAPY
     Dosage: 5 MG 1X PER 1 DAY, ORAL
     Route: 048
     Dates: start: 20020730
  2. PROGRAF [Suspect]
     Indication: PROPHYLAXIS AGAINST TRANSPLANT REJECTION
     Dosage: 5 MG 1X PER 1 DAY, ORAL
     Route: 048
     Dates: start: 20020730
  3. CELLCEPT [Concomitant]
  4. MEDROL [Concomitant]
  5. BACTRIM [Concomitant]
  6. ATENOLOL [Concomitant]
  7. LIPITOR [Concomitant]
  8. VASOTEC [Concomitant]
  9. NEXIUM [Concomitant]
  10. NILSTAT (NYSTATIN) [Concomitant]
  11. PROCARDIA [Concomitant]
  12. MULTIVITAMIS (ASCORBIC ACID/ERGOCALCIFEROL/FOLIC ACID/NICOTINAMIDE/PAN [Concomitant]

REACTIONS (10)
  - ABNORMAL SENSATION IN EYE [None]
  - CHILLS [None]
  - COUGH [None]
  - CRANIAL NERVE PARALYSIS [None]
  - DIPLOPIA [None]
  - HEADACHE [None]
  - IVTH NERVE PARALYSIS [None]
  - NAUSEA [None]
  - POSTNASAL DRIP [None]
  - PYREXIA [None]
